FAERS Safety Report 4946299-4 (Version None)
Quarter: 2006Q1

REPORT INFORMATION
  Report Type: 
  Country: None (occurrence: None)
  Receive Date: 20060316
  Receipt Date: 20060316
  Transmission Date: 20060701
  Serious: Yes (Other)
  Sender: FDA-Public Use
  Company Number: None

PATIENT
  Sex: Male
  Weight: 72.5755 kg

DRUGS (1)
  1. AMBIEN [Suspect]
     Indication: INSOMNIA
     Dosage: 10 - 20 MG PER NIGHT PO
     Route: 048

REACTIONS (9)
  - AMNESIA [None]
  - BALANCE DISORDER [None]
  - COORDINATION ABNORMAL [None]
  - DIZZINESS [None]
  - DYSPHEMIA [None]
  - FEELING DRUNK [None]
  - JUDGEMENT IMPAIRED [None]
  - LIBIDO INCREASED [None]
  - SPEECH DISORDER [None]
